FAERS Safety Report 5367444-5 (Version None)
Quarter: 2007Q2

REPORT INFORMATION
  Report Type: 
  Country: None (occurrence: None)
  Receive Date: 20070622
  Receipt Date: 20060801
  Transmission Date: 20071010
  Serious: No
  Sender: FDA-Public Use
  Company Number: US-ASTRAZENECA-2006UW15451

PATIENT
  Age: 8 Year
  Sex: Male
  Weight: 54.4 kg

DRUGS (2)
  1. PULMICORT RESPULES [Suspect]
     Indication: ASTHMA
     Route: 055
  2. XOPENEX [Suspect]

REACTIONS (2)
  - MEDICATION ERROR [None]
  - PAIN IN EXTREMITY [None]
